FAERS Safety Report 15542621 (Version 1)
Quarter: 2018Q4

REPORT INFORMATION
  Report Type: Spontaneous
  Country: US (occurrence: US)
  Receive Date: 20181023
  Receipt Date: 20181023
  Transmission Date: 20190205
  Serious: No
  Sender: FDA-Public Use
  Company Number: US-SA-2018SA291504

PATIENT
  Age: 79 Year
  Sex: Female

DRUGS (2)
  1. PRALUENT [Suspect]
     Active Substance: ALIROCUMAB
     Indication: TYPE V HYPERLIPIDAEMIA
     Dosage: 75 MG, Q3W
     Route: 058
     Dates: start: 201606
  2. PRALUENT [Suspect]
     Active Substance: ALIROCUMAB
     Indication: MYOCARDIAL ISCHAEMIA

REACTIONS (4)
  - Pain in extremity [Unknown]
  - Product use issue [Unknown]
  - Myalgia [Unknown]
  - Fall [Unknown]

NARRATIVE: CASE EVENT DATE: 20180831
